FAERS Safety Report 6307912-2 (Version None)
Quarter: 2009Q3

REPORT INFORMATION
  Report Type: 
  Country: None (occurrence: None)
  Receive Date: 20090813
  Receipt Date: 20090807
  Transmission Date: 20100115
  Serious: Yes (Hospitalization, Disabling)
  Sender: FDA-Public Use
  Company Number: DE-WYE-G04206609

PATIENT
  Age: 61 Year
  Sex: Female
  Weight: 60 kg

DRUGS (1)
  1. TORISEL [Suspect]
     Indication: TRANSITIONAL CELL CARCINOMA
     Route: 042

REACTIONS (2)
  - ARTHRITIS [None]
  - CATHETER RELATED INFECTION [None]
